FAERS Safety Report 16406773 (Version 3)
Quarter: 2019Q3

REPORT INFORMATION
  Report Type: Spontaneous
  Country: GB (occurrence: GB)
  Receive Date: 20190607
  Receipt Date: 20190816
  Transmission Date: 20191004
  Serious: Yes (Hospitalization, Other)
  Sender: FDA-Public Use
  Company Number: GB-BAUSCH-BL-2019-016342

PATIENT
  Age: 65 Year
  Sex: Male
  Weight: 82.55 kg

DRUGS (4)
  1. MOVIPREP [Suspect]
     Active Substance: ASCORBIC ACID\POLYETHYLENE GLYCOL 3350\POTASSIUM CHLORIDE\SODIUM ASCORBATE\SODIUM CHLORIDE\SODIUM SULFATE
     Route: 065
     Dates: start: 20190523, end: 20190524
  2. OMEPRAZOLE. [Concomitant]
     Active Substance: OMEPRAZOLE
     Indication: PRODUCT USED FOR UNKNOWN INDICATION
  3. MOVIPREP [Suspect]
     Active Substance: ASCORBIC ACID\POLYETHYLENE GLYCOL 3350\POTASSIUM CHLORIDE\SODIUM ASCORBATE\SODIUM CHLORIDE\SODIUM SULFATE
     Indication: BOWEL PREPARATION
     Dosage: STARTED 3 MONTHS AGO
     Route: 065
     Dates: start: 2019, end: 2019
  4. MOVIPREP [Suspect]
     Active Substance: ASCORBIC ACID\POLYETHYLENE GLYCOL 3350\POTASSIUM CHLORIDE\SODIUM ASCORBATE\SODIUM CHLORIDE\SODIUM SULFATE
     Route: 065
     Dates: start: 2019, end: 2019

REACTIONS (15)
  - Hyperhidrosis [Unknown]
  - Liver disorder [Recovering/Resolving]
  - Dizziness [Recovering/Resolving]
  - Infection [Recovering/Resolving]
  - Renal disorder [Recovering/Resolving]
  - Incorrect dose administered [Unknown]
  - Pyrexia [Recovering/Resolving]
  - Retching [Unknown]
  - Anxiety [Unknown]
  - Renal pain [Recovering/Resolving]
  - Malaise [Unknown]
  - Blood urine present [Recovering/Resolving]
  - Palpitations [Unknown]
  - Urinary tract infection [Recovering/Resolving]
  - Blood pressure increased [Recovering/Resolving]

NARRATIVE: CASE EVENT DATE: 2019
